FAERS Safety Report 16120564 (Version 1)
Quarter: 2019Q1

REPORT INFORMATION
  Report Type: Spontaneous
  Country: GB (occurrence: GB)
  Receive Date: 20190326
  Receipt Date: 20190326
  Transmission Date: 20190418
  Serious: Yes (Other)
  Sender: FDA-Public Use
  Company Number: GB-BAXTER-2019BAX003588

PATIENT

DRUGS (2)
  1. PRISM0CAL [Suspect]
     Active Substance: CARBONATE ION\LACTIC ACID\MAGNESIUM CATION\SODIUM CHLORIDE
     Indication: RENAL REPLACEMENT THERAPY
     Route: 010
     Dates: start: 20190213
  2. PHOXILIUM [Suspect]
     Active Substance: CALCIUM CL\MAGNESIUM CL\POTASSIUM CL\SODIUM BICAR\SODIUM CL\SODIUM PHOSPHATE,DIB
     Indication: RENAL REPLACEMENT THERAPY
     Route: 010
     Dates: start: 20190213

REACTIONS (5)
  - Device issue [Unknown]
  - Device infusion issue [Unknown]
  - Hypercalcaemia [Unknown]
  - Incorrect drug administration rate [Unknown]
  - Incorrect dose administered [Unknown]

NARRATIVE: CASE EVENT DATE: 20190214
